FAERS Safety Report 7033555-1 (Version None)
Quarter: 2010Q4

REPORT INFORMATION
  Report Type: 
  Country: None (occurrence: None)
  Receive Date: 20101007
  Receipt Date: 20100924
  Transmission Date: 20110411
  Serious: Yes (Hospitalization)
  Sender: FDA-Public Use
  Company Number: PHHY2010US63837

PATIENT
  Sex: Male

DRUGS (2)
  1. EXJADE [Suspect]
     Indication: SIDEROBLASTIC ANAEMIA
     Dosage: 1250 MG DAILY
     Route: 048
     Dates: start: 20100519
  2. EXJADE [Suspect]
     Indication: MYELOID LEUKAEMIA

REACTIONS (1)
  - BONE OPERATION [None]
